FAERS Safety Report 5795811-4 (Version None)
Quarter: 2008Q3

REPORT INFORMATION
  Report Type: 
  Country: None (occurrence: None)
  Receive Date: 20080701
  Receipt Date: 20080610
  Transmission Date: 20090109
  Serious: No
  Sender: FDA-Public Use
  Company Number: US-BAYER-200825058NA

PATIENT
  Age: 60 Year
  Sex: Male

DRUGS (3)
  1. ULTRAVIST (PHARMACY BULK) [Suspect]
     Indication: COMPUTERISED TOMOGRAM KIDNEY
     Dosage: TOTAL DAILY DOSE: 175 ML  UNIT DOSE: 500 ML
     Route: 042
     Dates: start: 20080413, end: 20080413
  2. COLACE [Concomitant]
  3. HYDROCODONE [Concomitant]

REACTIONS (1)
  - URTICARIA [None]
